FAERS Safety Report 8856667 (Version 1)
Quarter: 2012Q4

REPORT INFORMATION
  Report Type: 
  Country: US (occurrence: US)
  Receive Date: 20121023
  Receipt Date: 20121023
  Transmission Date: 20130627
  Serious: No
  Sender: FDA-Public Use
  Company Number: US-AMGEN-USASP2012056540

PATIENT
  Age: 25 Year
  Sex: Male
  Weight: 65.76 kg

DRUGS (9)
  1. ENBREL [Suspect]
     Indication: PRODUCT USED FOR UNKNOWN INDICATION
     Dosage: 50 mg, qwk
     Route: 058
  2. METHOTREXATE [Concomitant]
     Dosage: 20 mg, UNK
  3. FOLIC ACID [Concomitant]
     Dosage: 20 mg, UNK
  4. VITAMIN C + E [Concomitant]
     Dosage: UNK
  5. SAW PALMETTO                       /00833501/ [Concomitant]
     Dosage: UNK
  6. CRANBERRY                          /01512301/ [Concomitant]
     Dosage: UNK
  7. FISH OIL [Concomitant]
     Dosage: UNK
  8. OMEGA 3                            /01334101/ [Concomitant]
     Dosage: 1000 mg, UNK
  9. CRANBERRY                          /01512301/ [Concomitant]
     Dosage: UNK

REACTIONS (1)
  - Ear infection [Recovered/Resolved]
